FAERS Safety Report 6702298-3 (Version None)
Quarter: 2010Q2

REPORT INFORMATION
  Report Type: 
  Country: None (occurrence: None)
  Receive Date: 20100429
  Receipt Date: 20100428
  Transmission Date: 20101027
  Serious: Yes (Other)
  Sender: FDA-Public Use
  Company Number: IT-BRISTOL-MYERS SQUIBB COMPANY-15043946

PATIENT
  Age: 62 Year
  Sex: Male

DRUGS (3)
  1. COUMADIN [Suspect]
     Indication: DEEP VEIN THROMBOSIS
     Route: 048
     Dates: start: 20090720, end: 20100330
  2. CIPROXIN [Suspect]
     Indication: INFECTION
     Dosage: 500 MG
     Route: 048
     Dates: start: 20100310, end: 20100321
  3. IBRUPROFEN [Concomitant]
     Route: 048

REACTIONS (2)
  - INTERNATIONAL NORMALISED RATIO INCREASED [None]
  - MOUTH HAEMORRHAGE [None]
